FAERS Safety Report 4870899-3 (Version None)
Quarter: 2005Q4

REPORT INFORMATION
  Report Type: 
  Country: None (occurrence: None)
  Receive Date: 20051229
  Receipt Date: 20051214
  Transmission Date: 20060501
  Serious: Yes (Hospitalization)
  Sender: FDA-Public Use
  Company Number: S05-ESP-05734-01

PATIENT
  Age: 81 Year
  Sex: Female

DRUGS (6)
  1. MEMANTINE HCL [Suspect]
     Dosage: 10 MG BID PO
     Route: 048
     Dates: end: 20051006
  2. TRAZODONE HCL [Concomitant]
  3. DISTRANEURINE (CLOMETHIAZOLE EDISILATE) [Concomitant]
  4. RISPERDAL [Concomitant]
  5. BUDESONIDE [Concomitant]
  6. SEREVENT [Concomitant]

REACTIONS (1)
  - PANCREATITIS [None]
